FAERS Safety Report 5312262-7 (Version None)
Quarter: 2007Q2

REPORT INFORMATION
  Report Type: 
  Country: None (occurrence: None)
  Receive Date: 20070430
  Receipt Date: 20061012
  Transmission Date: 20071010
  Serious: No
  Sender: FDA-Public Use
  Company Number: 2006UW18703

PATIENT
  Age: 29054 Day
  Sex: Male
  Weight: 118.2 kg

DRUGS (7)
  1. NEXIUM [Suspect]
     Indication: VOCAL CORD DISORDER
     Route: 048
  2. NEXIUM [Suspect]
     Route: 048
  3. INSULIN [Concomitant]
     Indication: DIABETES MELLITUS
  4. BENICAR [Concomitant]
  5. LIPITOR [Concomitant]
     Route: 048
  6. CHILDREN'S ASPIRIN [Concomitant]
  7. VITAMINS [Concomitant]

REACTIONS (2)
  - DIARRHOEA [None]
  - HANGOVER [None]
